FAERS Safety Report 9293619 (Version 4)
Quarter: 2013Q4

REPORT INFORMATION
  Report Type: Spontaneous
  Country: US (occurrence: US)
  Receive Date: 20130516
  Receipt Date: 20131129
  Transmission Date: 20140711
  Serious: Yes (Hospitalization, Other)
  Sender: FDA-Public Use
  Company Number: US-ASTRAZENECA-2013SE31590

PATIENT
  Age: 58 Year
  Sex: Female
  Weight: 52.2 kg

DRUGS (62)
  1. NEXIUM [Suspect]
     Indication: SCLERODERMA
     Route: 048
     Dates: start: 2001, end: 2003
  2. NEXIUM [Suspect]
     Indication: GASTROOESOPHAGEAL REFLUX DISEASE
     Route: 048
     Dates: start: 2001, end: 2003
  3. NEXIUM [Suspect]
     Indication: GASTROOESOPHAGEAL REFLUX DISEASE
     Route: 048
     Dates: start: 2001, end: 2003
  4. NEXIUM [Suspect]
     Indication: SCLERODERMA
     Route: 048
     Dates: start: 2001, end: 2003
  5. NEXIUM [Suspect]
     Indication: GASTROOESOPHAGEAL REFLUX DISEASE
     Route: 048
     Dates: start: 2001, end: 2003
  6. NEXIUM [Suspect]
     Indication: GASTROOESOPHAGEAL REFLUX DISEASE
     Route: 048
     Dates: start: 2001, end: 2003
  7. NEXIUM [Suspect]
     Indication: SCLERODERMA
     Route: 048
     Dates: start: 2003, end: 2009
  8. NEXIUM [Suspect]
     Indication: GASTROOESOPHAGEAL REFLUX DISEASE
     Route: 048
     Dates: start: 2003, end: 2009
  9. NEXIUM [Suspect]
     Indication: GASTROOESOPHAGEAL REFLUX DISEASE
     Route: 048
     Dates: start: 2003, end: 2009
  10. NEXIUM [Suspect]
     Indication: SCLERODERMA
     Route: 048
     Dates: start: 2009, end: 20131002
  11. NEXIUM [Suspect]
     Indication: GASTROOESOPHAGEAL REFLUX DISEASE
     Route: 048
     Dates: start: 2009, end: 20131002
  12. NEXIUM [Suspect]
     Indication: GASTROOESOPHAGEAL REFLUX DISEASE
     Route: 048
     Dates: start: 2009, end: 20131002
  13. PRILOSEC [Suspect]
     Route: 048
  14. ESTRADIOL [Concomitant]
     Indication: HYSTERECTOMY
     Route: 048
     Dates: start: 1984
  15. ESTRADIOL [Concomitant]
     Indication: HORMONE REPLACEMENT THERAPY
     Route: 048
     Dates: start: 1984
  16. ESTRADIOL [Concomitant]
     Indication: HYSTERECTOMY
     Route: 048
     Dates: start: 1983
  17. ESTRADIOL [Concomitant]
     Indication: HORMONE REPLACEMENT THERAPY
     Route: 048
     Dates: start: 1983
  18. PLAQUENIL [Concomitant]
     Indication: SYSTEMIC LUPUS ERYTHEMATOSUS
     Route: 048
     Dates: start: 1991
  19. PLAQUENIL [Concomitant]
     Indication: SYSTEMIC LUPUS ERYTHEMATOSUS
     Route: 048
     Dates: start: 1991
  20. PREDNISONE [Concomitant]
     Indication: ARTHRITIS
     Route: 048
     Dates: start: 1992
  21. PREDNISONE [Concomitant]
     Indication: AUTOIMMUNE DISORDER
     Route: 048
     Dates: start: 1992
  22. PREDNISONE [Concomitant]
     Indication: ARTHRITIS
     Route: 048
     Dates: start: 1991
  23. PREDNISONE [Concomitant]
     Indication: AUTOIMMUNE DISORDER
     Route: 048
     Dates: start: 1991
  24. CIMBALTA [Concomitant]
     Indication: FIBROMYALGIA
     Route: 048
     Dates: start: 2009
  25. CIMBALTA [Concomitant]
     Indication: ARTHRITIS
     Route: 048
     Dates: start: 2009
  26. CIMBALTA [Concomitant]
     Indication: FIBROMYALGIA
     Route: 048
     Dates: start: 2008
  27. CIMBALTA [Concomitant]
     Indication: ARTHRITIS
     Route: 048
     Dates: start: 2008
  28. SAVELLA [Concomitant]
     Indication: FIBROMYALGIA
     Route: 048
     Dates: start: 2012
  29. SAVELLA [Concomitant]
     Indication: FIBROMYALGIA
     Route: 048
     Dates: start: 201301
  30. SAVELLA [Concomitant]
     Indication: FIBROMYALGIA
     Route: 048
     Dates: start: 201301
  31. EXFORGE [Concomitant]
     Indication: BLOOD PRESSURE ABNORMAL
     Dosage: 10 MG - 160 MG DAILY
     Route: 048
     Dates: start: 2010
  32. EXFORGE [Concomitant]
     Indication: BLOOD PRESSURE ABNORMAL
     Dosage: 10/160 MG AT NIGHT
     Route: 048
     Dates: start: 2008
  33. DOLTIDEM [Concomitant]
     Indication: SLEEP DISORDER
     Route: 048
     Dates: start: 2012
  34. CYCLOBENZAPRINE [Concomitant]
     Indication: MUSCLE RELAXANT THERAPY
     Route: 048
     Dates: start: 2003
  35. CYCLOBENZAPRINE [Concomitant]
     Indication: MUSCLE RELAXANT THERAPY
     Route: 048
     Dates: start: 2008
  36. CYCLOBENZAPRINE [Concomitant]
     Indication: MUSCLE RELAXANT THERAPY
     Route: 048
     Dates: start: 2008
  37. NYSTATIN [Concomitant]
     Indication: GASTRIC DISORDER
     Dosage: 1,000 UNITS, 1 TSP QID
     Route: 048
     Dates: start: 2003
  38. NYSTATIN [Concomitant]
     Indication: DYSPEPSIA
     Dosage: 1,000 UNITS, 1 TSP QID
     Route: 048
     Dates: start: 2003
  39. NYSTATIN [Concomitant]
     Indication: GASTRIC DISORDER
     Dosage: 1,000 UNITS/1 ML TSP QID
     Route: 048
     Dates: start: 2008
  40. NYSTATIN [Concomitant]
     Indication: DYSPEPSIA
     Dosage: 1,000 UNITS/1 ML TSP QID
     Route: 048
     Dates: start: 2008
  41. PROMETHEGAN [Concomitant]
     Indication: NAUSEA
     Route: 054
     Dates: start: 2003
  42. PROMETHEGAN [Concomitant]
     Indication: NAUSEA
     Route: 054
     Dates: start: 2000
  43. ONDANSETRON [Concomitant]
     Indication: NAUSEA
     Route: 048
  44. ONDANSETRON [Concomitant]
     Indication: NAUSEA
     Route: 048
     Dates: start: 2011
  45. MIRAPEX [Concomitant]
     Indication: RESTLESS LEGS SYNDROME
     Route: 048
     Dates: start: 2008
  46. MIRAPEX [Concomitant]
     Indication: RESTLESS LEGS SYNDROME
     Route: 048
     Dates: start: 2003
  47. MIRAPEX [Concomitant]
     Indication: RESTLESS LEGS SYNDROME
     Route: 048
     Dates: start: 20131022
  48. LORAZEPAM [Concomitant]
     Indication: NERVOUS SYSTEM DISORDER
     Route: 048
     Dates: start: 2008
  49. LORAZEPAM [Concomitant]
     Indication: NERVOUS SYSTEM DISORDER
     Route: 048
     Dates: start: 1997
  50. PROMETHAZINE [Concomitant]
     Indication: NAUSEA
     Route: 048
     Dates: start: 2003
  51. PROMETHAZINE [Concomitant]
     Indication: NAUSEA
     Route: 048
     Dates: start: 2008
  52. ZOLPIDEM TARTRATE [Concomitant]
     Indication: SLEEP DISORDER
     Route: 048
     Dates: start: 2011
  53. MULTI VITAMIN FOR WOMEN [Concomitant]
     Indication: SUPPLEMENTATION THERAPY
     Dosage: 1 DAILY
     Route: 048
  54. CALCIUM GUMMY BEAR [Concomitant]
     Indication: SUPPLEMENTATION THERAPY
     Dosage: 2 DAILY
     Route: 048
     Dates: start: 1992
  55. VITAMIN C [Concomitant]
     Indication: SUPPLEMENTATION THERAPY
     Route: 048
  56. VITAMIN D3 [Concomitant]
     Indication: SUPPLEMENTATION THERAPY
     Route: 048
     Dates: start: 201301
  57. FISH OIL GUMMY BEAR [Concomitant]
     Indication: SUPPLEMENTATION THERAPY
     Dosage: 2 DAILY
     Route: 048
  58. VITAMIN B12 [Concomitant]
     Indication: SUPPLEMENTATION THERAPY
     Dosage: 1 DAILY
     Route: 048
  59. GAS RELIEF [Concomitant]
     Indication: FLATULENCE
     Dosage: PRN
     Route: 048
  60. IBUPROFEN [Concomitant]
     Indication: BACK PAIN
     Dosage: PRN
     Route: 048
  61. NORCO/HYDROCODONE/ACETAMINOPHEN [Concomitant]
     Indication: PAIN
     Dosage: 10/325 MG PRN
     Route: 048
     Dates: start: 2000
  62. OXYCODONE HCL [Concomitant]
     Indication: PAIN
     Route: 048
     Dates: start: 201306

REACTIONS (31)
  - Surgical failure [Unknown]
  - Gastrooesophageal reflux disease [Unknown]
  - Fall [Unknown]
  - Rib fracture [Unknown]
  - Gastrooesophageal reflux disease [Unknown]
  - Sleep disorder due to general medical condition, insomnia type [Unknown]
  - Concussion [Unknown]
  - Arthritis [Unknown]
  - Crying [Unknown]
  - Adverse event [Unknown]
  - Amnesia [Unknown]
  - Nervousness [Unknown]
  - Weight abnormal [Unknown]
  - Dyspepsia [Unknown]
  - Ear disorder [Unknown]
  - Osteoporosis [Unknown]
  - Blood test abnormal [Unknown]
  - Oesophageal disorder [Unknown]
  - Ligament sprain [Unknown]
  - Ligament sprain [Unknown]
  - Pneumonia staphylococcal [Unknown]
  - Fibromyalgia [Unknown]
  - Gastrointestinal motility disorder [Unknown]
  - Procedural complication [Unknown]
  - Vomiting [Unknown]
  - Agitation [Unknown]
  - Dry mouth [Unknown]
  - Drug ineffective [Unknown]
  - Off label use [Unknown]
  - Intentional drug misuse [Unknown]
  - Drug dose omission [Unknown]
